FAERS Safety Report 26153308 (Version 1)
Quarter: 2025Q4

REPORT INFORMATION
  Report Type: Spontaneous
  Country: US (occurrence: US)
  Receive Date: 20251214
  Receipt Date: 20251214
  Transmission Date: 20260117
  Serious: No
  Sender: Atnahs Healthcare
  Company Number: US-ATNAHS-ATNAHS20250704947

PATIENT
  Age: 78 Year
  Sex: Female
  Weight: 81.633 kg

DRUGS (12)
  1. VALIUM [Suspect]
     Active Substance: DIAZEPAM
     Indication: Product used for unknown indication
  2. XOLAIR [Suspect]
     Active Substance: OMALIZUMAB
     Indication: Urticaria
     Dosage: 300 MILLIGRAM, 1 IN 4 WEEK
     Dates: start: 20250620
  3. XOLAIR [Suspect]
     Active Substance: OMALIZUMAB
     Indication: Swollen tongue
  4. XOLAIR [Suspect]
     Active Substance: OMALIZUMAB
     Indication: Idiopathic urticaria
  5. FAMOTIDINE [Concomitant]
     Active Substance: FAMOTIDINE
     Indication: Swollen tongue
     Dosage: 40 MILLIGRAM, 2X/DAY
     Dates: start: 20250528
  6. FAMOTIDINE [Concomitant]
     Active Substance: FAMOTIDINE
     Dosage: 20 MILLIGRAM, 2X/DAY
     Dates: start: 20250617
  7. ZYRTEC [Concomitant]
     Active Substance: CETIRIZINE HYDROCHLORIDE
     Indication: Product used for unknown indication
     Dosage: 20 MG 2 TIME A DAY
     Dates: start: 20250529
  8. ALERTEC [MODAFINIL] [Concomitant]
     Indication: Product used for unknown indication
     Dosage: 20 MILLIGRAM, 2X/DAY
  9. ASCORBIC ACID [Concomitant]
     Active Substance: ASCORBIC ACID
     Indication: Product used for unknown indication
  10. BENADRYL [Concomitant]
     Active Substance: DIPHENHYDRAMINE HYDROCHLORIDE
     Indication: Product used for unknown indication
  11. PREDNISONE [Concomitant]
     Active Substance: PREDNISONE
     Indication: Product used for unknown indication
  12. CETIRIZINE [Concomitant]
     Active Substance: CETIRIZINE HYDROCHLORIDE
     Indication: Product used for unknown indication

REACTIONS (4)
  - Drug hypersensitivity [Unknown]
  - Cough [Not Recovered/Not Resolved]
  - Lethargy [Not Recovered/Not Resolved]
  - Pain [Unknown]
